FAERS Safety Report 4533946-4 (Version None)
Quarter: 2004Q4

REPORT INFORMATION
  Report Type: 
  Country: None (occurrence: None)
  Receive Date: 20041221
  Receipt Date: 20041012
  Transmission Date: 20050328
  Serious: Yes (Other)
  Sender: FDA-Public Use
  Company Number: 2004S1003059

PATIENT
  Age: 60 Year
  Sex: Female

DRUGS (3)
  1. BUPROPION HYDROCHLORIDE [Suspect]
     Dosage: 75 MG TID, ORAL
     Route: 048
  2. ANTIBIOTIC [Concomitant]
  3. INDOMETHACIN [Concomitant]

REACTIONS (10)
  - ANXIETY [None]
  - ARTHRALGIA [None]
  - CHANGE OF BOWEL HABIT [None]
  - FEELING ABNORMAL [None]
  - GASTRIC DISORDER [None]
  - HAEMATOCHEZIA [None]
  - NERVOUSNESS [None]
  - PHARMACEUTICAL PRODUCT COMPLAINT [None]
  - RESTLESSNESS [None]
  - TREATMENT NONCOMPLIANCE [None]
